FAERS Safety Report 18182076 (Version 1)
Quarter: 2020Q3

REPORT INFORMATION
  Report Type: Spontaneous
  Country: DE (occurrence: DE)
  Receive Date: 20200821
  Receipt Date: 20200821
  Transmission Date: 20201103
  Serious: Yes (Other)
  Sender: FDA-Public Use
  Company Number: DE-JNJFOC-20200821608

PATIENT
  Sex: Female

DRUGS (1)
  1. ERDAFITINIB. [Suspect]
     Active Substance: ERDAFITINIB
     Indication: CHOLANGIOCARCINOMA
     Route: 048
     Dates: start: 20200605, end: 20200731

REACTIONS (3)
  - Product availability issue [Recovered/Resolved]
  - Product dose omission issue [Unknown]
  - Liver function test abnormal [Unknown]

NARRATIVE: CASE EVENT DATE: 20200731
